FAERS Safety Report 21214588 (Version 2)
Quarter: 2025Q2

REPORT INFORMATION
  Report Type: Spontaneous
  Country: US (occurrence: US)
  Receive Date: 20220816
  Receipt Date: 20250617
  Transmission Date: 20250717
  Serious: Yes (Other)
  Sender: AUROBINDO
  Company Number: US-AUROBINDO-AUR-APL-2022-032554

PATIENT
  Age: 50 Year
  Sex: Female

DRUGS (3)
  1. ROCURONIUM BROMIDE [Interacting]
     Active Substance: ROCURONIUM BROMIDE
     Indication: Cardioversion
     Route: 065
  2. ROCURONIUM BROMIDE [Interacting]
     Active Substance: ROCURONIUM BROMIDE
     Indication: Endotracheal intubation
  3. SEVOFLURANE [Interacting]
     Active Substance: SEVOFLURANE
     Indication: Anaesthesia
     Route: 065

REACTIONS (4)
  - Paralysis [Unknown]
  - Therapeutic product effect prolonged [Unknown]
  - Drug interaction [Unknown]
  - Neuromuscular blocking therapy [Unknown]
